FAERS Safety Report 4664954-0 (Version None)
Quarter: 2005Q2

REPORT INFORMATION
  Report Type: 
  Country: None (occurrence: None)
  Receive Date: 20050517
  Receipt Date: 20050429
  Transmission Date: 20051028
  Serious: Yes (Hospitalization)
  Sender: FDA-Public Use
  Company Number: GBS050417206

PATIENT
  Age: 10 Year
  Sex: Male
  Weight: 22 kg

DRUGS (1)
  1. STRATTERA [Suspect]
     Indication: ATTENTION DEFICIT/HYPERACTIVITY DISORDER
     Dosage: 25 MG DAY
     Route: 048
     Dates: start: 20041201, end: 20050401

REACTIONS (2)
  - MIGRAINE [None]
  - VOMITING [None]
